FAERS Safety Report 17269397 (Version 3)
Quarter: 2020Q1

REPORT INFORMATION
  Report Type: Spontaneous
  Country: MX (occurrence: MX)
  Receive Date: 20200114
  Receipt Date: 20200213
  Transmission Date: 20200409
  Serious: Yes (Hospitalization, Disabling, Other)
  Sender: FDA-Public Use
  Company Number: MX-ASTRAZENECA-2020SE04278

PATIENT
  Age: 78 Year
  Sex: Male

DRUGS (5)
  1. EUTIROX [Concomitant]
     Active Substance: LEVOTHYROXINE SODIUM
  2. CALQUENCE [Suspect]
     Active Substance: ACALABRUTINIB
     Indication: MANTLE CELL LYMPHOMA RECURRENT
     Route: 048
  3. TAFIL [Concomitant]
     Active Substance: ALPRAZOLAM
  4. APIXABAN [Concomitant]
     Active Substance: APIXABAN
  5. LEXOTAN [Concomitant]
     Active Substance: BROMAZEPAM
     Dosage: 3.0MG UNKNOWN

REACTIONS (6)
  - Blindness [Unknown]
  - Head injury [Unknown]
  - Neutrophil count decreased [Unknown]
  - Infection [Unknown]
  - Off label use [Unknown]
  - Pyrexia [Unknown]
